FAERS Safety Report 6658732-0 (Version None)
Quarter: 2010Q1

REPORT INFORMATION
  Report Type: 
  Country: None (occurrence: None)
  Receive Date: 20100330
  Receipt Date: 20100322
  Transmission Date: 20100710
  Serious: Yes (Other)
  Sender: FDA-Public Use
  Company Number: PHHY2010GB06358

PATIENT
  Sex: Female

DRUGS (10)
  1. CLOZARIL [Interacting]
     Indication: SCHIZOPHRENIA
     Dosage: UNK
     Dates: start: 20040428
  2. CLOZARIL [Interacting]
     Dosage: 50 MG, UNK
     Dates: start: 20090905
  3. CLOZARIL [Interacting]
     Dosage: 75 MG, UNK
     Dates: start: 20090905, end: 20091211
  4. CLOZARIL [Interacting]
     Dosage: 50 MG, UNK
     Dates: start: 20091211, end: 20100201
  5. CLOZARIL [Interacting]
     Dosage: 25 MG, UNK
     Dates: start: 20100202, end: 20100216
  6. AMISULPRIDE [Suspect]
     Dosage: 200 MG, UNK
     Dates: start: 20091119, end: 20100225
  7. AMITRIPTYLINE [Concomitant]
  8. ABILIFY [Concomitant]
  9. ARIPIPRAZOLE [Concomitant]
     Dosage: 15 MG, UNK
     Route: 048
     Dates: start: 20081201, end: 20091010
  10. ARIPIPRAZOLE [Concomitant]
     Dosage: 10 MG, UNK
     Dates: start: 20091010, end: 20091026

REACTIONS (4)
  - DRUG INTERACTION [None]
  - NEUTROPHIL COUNT DECREASED [None]
  - SINUS TACHYCARDIA [None]
  - WEIGHT INCREASED [None]
